FAERS Safety Report 4955901-2 (Version None)
Quarter: 2006Q1

REPORT INFORMATION
  Report Type: 
  Country: None (occurrence: None)
  Receive Date: 20060327
  Receipt Date: 20060327
  Transmission Date: 20060701
  Serious: Yes (Hospitalization, Other)
  Sender: FDA-Public Use
  Company Number: None

PATIENT
  Sex: Male
  Weight: 102 kg

DRUGS (2)
  1. CISPLATIN [Suspect]
     Indication: SMALL CELL LUNG CANCER STAGE UNSPECIFIED
     Dosage: 138 MG
     Dates: start: 20060301, end: 20060301
  2. ETOPOSIDE [Suspect]
     Dosage: 828 MG
     Dates: start: 20060301, end: 20060303

REACTIONS (1)
  - NEUTROPENIA [None]
